FAERS Safety Report 6903773-9 (Version None)
Quarter: 2010Q3

REPORT INFORMATION
  Report Type: 
  Country: None (occurrence: None)
  Receive Date: 20100804
  Receipt Date: 20081210
  Transmission Date: 20110219
  Serious: Yes (Other)
  Sender: FDA-Public Use
  Company Number: US-PFIZER INC-2008093123

PATIENT
  Sex: Female

DRUGS (6)
  1. LYRICA [Suspect]
     Indication: SPINAL OSTEOARTHRITIS
     Dosage: 50 MG, UNK
     Route: 048
     Dates: start: 20081001, end: 20080101
  2. LYRICA [Suspect]
     Indication: LUMBAR RADICULOPATHY
  3. AMBIEN [Concomitant]
  4. PREDNISONE [Concomitant]
     Dosage: 20 MG, UNK
  5. FLEXERIL [Concomitant]
     Dosage: 10 MG, UNK
  6. WELLBUTRIN SR [Concomitant]
     Dosage: 150 MG, UNK

REACTIONS (6)
  - OEDEMA MOUTH [None]
  - OROPHARYNGEAL BLISTERING [None]
  - STOMATITIS [None]
  - SWOLLEN TONGUE [None]
  - TONGUE BLISTERING [None]
  - TONGUE DISORDER [None]
